FAERS Safety Report 20047429 (Version 1)
Quarter: 2021Q4

REPORT INFORMATION
  Report Type: Spontaneous
  Country: US (occurrence: None)
  Receive Date: 20211109
  Receipt Date: 20211109
  Transmission Date: 20220303
  Serious: No
  Sender: FDA-Public Use
  Company Number: 2021A782667

PATIENT
  Age: 72 Year
  Sex: Female
  Weight: 113.4 kg

DRUGS (7)
  1. FARXIGA [Suspect]
     Active Substance: DAPAGLIFLOZIN PROPANEDIOL
     Indication: Blood glucose increased
     Route: 048
     Dates: start: 20210826
  2. FARXIGA [Suspect]
     Active Substance: DAPAGLIFLOZIN PROPANEDIOL
     Indication: Lymphoedema
     Route: 048
     Dates: start: 20210826
  3. OZEMPIC [Concomitant]
     Active Substance: SEMAGLUTIDE
     Indication: Diabetes mellitus
     Dosage: 0.5MG UNKNOWN
     Route: 065
  4. SPIRONOLACTONE/HYDROCHLOROTHIAZIDE [Concomitant]
     Indication: Hypertension
     Dosage: 25/25 MG, ONCE EACH DAY
     Route: 065
     Dates: start: 20210827
  5. SPIRONOLACTONE/HYDROCHLOROTHIAZIDE [Concomitant]
     Indication: Diuretic therapy
     Dosage: 25/25 MG, ONCE EACH DAY
     Route: 065
     Dates: start: 20210827
  6. MECLIZINE [Concomitant]
     Active Substance: MECLIZINE HYDROCHLORIDE
     Indication: Meniere^s disease
     Route: 065
  7. PHENERGAN [Concomitant]
     Active Substance: PROMETHAZINE HYDROCHLORIDE
     Indication: Meniere^s disease
     Route: 065

REACTIONS (4)
  - Contusion [Not Recovered/Not Resolved]
  - Weight decreased [Not Recovered/Not Resolved]
  - Fall [Not Recovered/Not Resolved]
  - Product use issue [Unknown]

NARRATIVE: CASE EVENT DATE: 20210101
